FAERS Safety Report 16931635 (Version 1)
Quarter: 2019Q4

REPORT INFORMATION
  Report Type: Spontaneous
  Country: US (occurrence: US)
  Receive Date: 20191017
  Receipt Date: 20191017
  Transmission Date: 20200122
  Serious: Yes (Other)
  Sender: FDA-Public Use
  Company Number: US-ASTRAZENECA-2019SF45820

PATIENT
  Sex: Male

DRUGS (1)
  1. IMFINZI [Suspect]
     Active Substance: DURVALUMAB
     Dosage: 5 ROUNDS OF IMFINZI
     Route: 042
     Dates: end: 201909

REACTIONS (2)
  - Non-small cell lung cancer stage III [Unknown]
  - Vision blurred [Unknown]
